FAERS Safety Report 7472714-0 (Version None)
Quarter: 2011Q2

REPORT INFORMATION
  Report Type: 
  Country: None (occurrence: None)
  Receive Date: 20110511
  Receipt Date: 20110503
  Transmission Date: 20111010
  Serious: Yes (Other)
  Sender: FDA-Public Use
  Company Number: US-JNJFOC-20100706700

PATIENT
  Sex: Female

DRUGS (3)
  1. CIPROFLAXACIN [Suspect]
     Indication: ANTIBIOTIC THERAPY
     Route: 065
  2. LEVAQUIN [Suspect]
     Indication: CYSTITIS
     Route: 048
  3. LEVAQUIN [Suspect]
     Indication: CYSTITIS INTERSTITIAL
     Route: 048

REACTIONS (2)
  - BURSITIS [None]
  - TENDONITIS [None]
